FAERS Safety Report 7349819-8 (Version None)
Quarter: 2011Q1

REPORT INFORMATION
  Report Type: 
  Country: None (occurrence: None)
  Receive Date: 20110222
  Receipt Date: 20101013
  Transmission Date: 20110831
  Serious: Yes (Other)
  Sender: FDA-Public Use
  Company Number: WWISSUE-513

PATIENT
  Sex: Male

DRUGS (1)
  1. DICYCLOMINE HCL [Suspect]
     Indication: PRODUCT USED FOR UNKNOWN INDICATION
     Dates: start: 20100927

REACTIONS (1)
  - HEADACHE [None]
